FAERS Safety Report 4287155-7 (Version None)
Quarter: 2004Q1

REPORT INFORMATION
  Report Type: 
  Country: None (occurrence: None)
  Receive Date: 20040121
  Receipt Date: 20030806
  Transmission Date: 20041129
  Serious: Yes (Other)
  Sender: FDA-Public Use
  Company Number: A03200301704

PATIENT
  Age: 81 Year
  Sex: Female
  Weight: 59.8748 kg

DRUGS (3)
  1. PLAVIX [Suspect]
     Indication: CARDIAC DISORDER
     Dosage: 75 MG QD - ORAL
     Route: 048
     Dates: start: 20020101
  2. VERAPAMIL [Concomitant]
  3. ATORVASTATIN [Concomitant]

REACTIONS (2)
  - DYSPNOEA EXERTIONAL [None]
  - MELAENA [None]
